FAERS Safety Report 5630518-5 (Version None)
Quarter: 2008Q1

REPORT INFORMATION
  Report Type: 
  Country: None (occurrence: None)
  Receive Date: 20080219
  Receipt Date: 20080208
  Transmission Date: 20080703
  Serious: Yes (Death, Hospitalization)
  Sender: FDA-Public Use
  Company Number: JP-AMGEN-US257659

PATIENT
  Sex: Female

DRUGS (12)
  1. ENBREL [Suspect]
     Indication: RHEUMATOID ARTHRITIS
     Route: 058
     Dates: start: 20050623, end: 20070810
  2. OLMETEC [Concomitant]
     Dosage: UNSPECIFIED
     Route: 048
  3. GASTER [Concomitant]
     Dosage: UNSPECIFIED
     Route: 048
  4. NORVASC [Concomitant]
     Dosage: UNSPECIFIED
     Route: 048
  5. ALFACALCIDOL [Concomitant]
     Dosage: UNSPECIFIED
     Route: 048
  6. RIBALL [Concomitant]
     Dosage: UNSPECIFIED
     Route: 048
  7. PROMID [Concomitant]
     Dosage: UNSPECIFIED
     Route: 048
  8. OPALMON [Concomitant]
     Dosage: UNSPECIFIED
     Route: 048
  9. LOXONIN [Concomitant]
     Indication: RHEUMATOID ARTHRITIS
     Dosage: UNSPECIFIED
     Route: 048
  10. DEPAS [Concomitant]
     Dosage: UNSPECIFIED
     Route: 048
  11. PREDNISOLONE [Concomitant]
     Indication: RHEUMATOID ARTHRITIS
     Dosage: UNSPECIFIED
     Route: 048
  12. LASIX [Concomitant]
     Dosage: UNSPECIFIED
     Route: 048

REACTIONS (14)
  - ABDOMINAL ABSCESS [None]
  - ACUTE RESPIRATORY DISTRESS SYNDROME [None]
  - ANAEMIA [None]
  - CARDIO-RESPIRATORY ARREST [None]
  - CONTINUOUS HAEMODIAFILTRATION [None]
  - DEPRESSED LEVEL OF CONSCIOUSNESS [None]
  - DIVERTICULAR PERFORATION [None]
  - ENTEROCOLITIS [None]
  - GENERALISED OEDEMA [None]
  - LARGE INTESTINE PERFORATION [None]
  - NO THERAPEUTIC RESPONSE [None]
  - PERITONITIS [None]
  - PNEUMONIA [None]
  - POSTOPERATIVE ABSCESS [None]
